FAERS Safety Report 6411621-9 (Version None)
Quarter: 2009Q4

REPORT INFORMATION
  Report Type: 
  Country: None (occurrence: None)
  Receive Date: 20091020
  Receipt Date: 20091005
  Transmission Date: 20100525
  Serious: Yes (Hospitalization, Disabling, Other)
  Sender: FDA-Public Use
  Company Number: A-US2009-24268

PATIENT
  Age: 34 Year
  Sex: Female

DRUGS (20)
  1. TRACLEER [Suspect]
     Indication: PULMONARY ARTERIAL HYPERTENSION
     Dosage: 125 MG, BID, ORAL
     Route: 048
     Dates: start: 20060101, end: 20081119
  2. METHADONE HCL [Concomitant]
  3. ENOXAPARIN SODIUM [Concomitant]
  4. LEVOTHYROXINE SODIUM [Concomitant]
  5. DIPYRIDAMOLE [Concomitant]
  6. LANSOPRAZOLE [Concomitant]
  7. METHOTREXATE [Concomitant]
  8. HYDROXYCHLOROQUINE SULFATE [Concomitant]
  9. ASPIRIN [Concomitant]
  10. CALCIUM CITRATE (CALCIUM CITRATE) [Concomitant]
  11. VITAMIN D [Concomitant]
  12. FLUOXETINE [Concomitant]
  13. PENTOXIFYLLINE [Concomitant]
  14. PREDNISONE TAB [Concomitant]
  15. TRIMETHOPRIM [Concomitant]
  16. HYDROMORPHONE HCL [Concomitant]
  17. DARVOCET-N (PARACETAMOL, DEXTROPROPOXYPHENE NAPSILATE) [Concomitant]
  18. FOLIC ACID [Concomitant]
  19. TRAMADOL HCL [Concomitant]
  20. VANCOMYCIN [Concomitant]

REACTIONS (34)
  - ALANINE AMINOTRANSFERASE INCREASED [None]
  - ANAEMIA [None]
  - ANTI-SS-A ANTIBODY POSITIVE [None]
  - ARTHRALGIA [None]
  - ASPARTATE AMINOTRANSFERASE INCREASED [None]
  - BLOOD CREATINE PHOSPHOKINASE INCREASED [None]
  - DYSPHAGIA [None]
  - GAIT DISTURBANCE [None]
  - HERPES OESOPHAGITIS [None]
  - HYPERGLYCAEMIA [None]
  - HYPOALBUMINAEMIA [None]
  - LEUKOPENIA [None]
  - MIXED CONNECTIVE TISSUE DISEASE [None]
  - MONONEURITIS [None]
  - MONONEUROPATHY MULTIPLEX [None]
  - MUSCULAR WEAKNESS [None]
  - MYOSITIS [None]
  - ODYNOPHAGIA [None]
  - OESOPHAGEAL PAIN [None]
  - OROPHARYNGEAL PAIN [None]
  - OSTEONECROSIS [None]
  - PAIN IN EXTREMITY [None]
  - PERICARDIAL EFFUSION [None]
  - PERONEAL NERVE PALSY [None]
  - POLYMYOSITIS [None]
  - PULMONARY HYPERTENSION [None]
  - PYREXIA [None]
  - RED BLOOD CELL SEDIMENTATION RATE INCREASED [None]
  - RHEUMATOID FACTOR POSITIVE [None]
  - SACROILIITIS [None]
  - SMOOTH MUSCLE ANTIBODY POSITIVE [None]
  - STAPHYLOCOCCUS TEST POSITIVE [None]
  - TACHYCARDIA [None]
  - WEIGHT DECREASED [None]
